FAERS Safety Report 11418427 (Version 1)
Quarter: 2015Q3

REPORT INFORMATION
  Report Type: Spontaneous
  Country: US (occurrence: US)
  Receive Date: 20150826
  Receipt Date: 20150826
  Transmission Date: 20151125
  Serious: No
  Sender: FDA-Public Use
  Company Number: US-NOVEN PHARMACEUTICALS, INC.-US2015000322

PATIENT
  Sex: Female

DRUGS (5)
  1. MINIVELLE [Suspect]
     Active Substance: ESTRADIOL
     Indication: BLOOD OESTROGEN
     Dosage: 0.1 MG, UNK
     Route: 062
     Dates: start: 20150428
  2. MINIVELLE [Suspect]
     Active Substance: ESTRADIOL
     Indication: HORMONE REPLACEMENT THERAPY
  3. SINGULAIR [Concomitant]
     Active Substance: MONTELUKAST SODIUM
     Indication: ASTHMA
  4. SYMBICORT [Concomitant]
     Active Substance: BUDESONIDE\FORMOTEROL FUMARATE DIHYDRATE
     Indication: ASTHMA
  5. SINGULAIR [Concomitant]
     Active Substance: MONTELUKAST SODIUM
     Indication: HYPERSENSITIVITY
     Dosage: 10 MG, UNK
     Route: 048

REACTIONS (2)
  - Application site pruritus [Not Recovered/Not Resolved]
  - Application site swelling [Not Recovered/Not Resolved]

NARRATIVE: CASE EVENT DATE: 20150520
